FAERS Safety Report 8843627 (Version 1)
Quarter: 2012Q4

REPORT INFORMATION
  Report Type: 
  Country: US (occurrence: US)
  Receive Date: 20121016
  Receipt Date: 20121016
  Transmission Date: 20130627
  Serious: Yes (Hospitalization)
  Sender: FDA-Public Use
  Company Number: US-WATSON-2012-17625

PATIENT
  Age: 93 Year
  Sex: Female

DRUGS (1)
  1. DIPHENHYDRAMINE (WATSON LABORATORIES) [Suspect]
     Indication: LOCAL ANAESTHESIA
     Dosage: 100 mg, single
     Route: 058

REACTIONS (2)
  - Anticholinergic syndrome [Recovered/Resolved]
  - Delirium [Recovered/Resolved]
